FAERS Safety Report 20693198 (Version 1)
Quarter: 2022Q2

REPORT INFORMATION
  Report Type: Spontaneous
  Country: US (occurrence: US)
  Receive Date: 20220410
  Receipt Date: 20220410
  Transmission Date: 20220721
  Serious: No
  Sender: FDA-Public Use
  Company Number: US-ELI_LILLY_AND_COMPANY-US202204003170

PATIENT
  Sex: Female

DRUGS (4)
  1. HUMULIN R [Suspect]
     Active Substance: INSULIN HUMAN
     Indication: Diabetes mellitus
     Dosage: UNK UNK, UNKNOWN (10 ML VIALS)
     Route: 065
     Dates: start: 2002
  2. HUMULIN R [Suspect]
     Active Substance: INSULIN HUMAN
     Dosage: UNK UNK, UNKNOWN (3 ML VIALS)
     Route: 065
  3. HUMULIN R [Suspect]
     Active Substance: INSULIN HUMAN
     Dosage: 15 U, TID
     Route: 065
  4. HUMULIN R [Suspect]
     Active Substance: INSULIN HUMAN
     Dosage: 20 U, TID
     Route: 065

REACTIONS (7)
  - Migraine [Unknown]
  - Glycosylated haemoglobin increased [Unknown]
  - Muscle spasms [Unknown]
  - Blood glucose increased [Unknown]
  - Pain [Unknown]
  - Bone disorder [Unknown]
  - Arthropathy [Unknown]
